FAERS Safety Report 9183244 (Version 1)
Quarter: 2013Q1

REPORT INFORMATION
  Report Type: Spontaneous
  Country: US (occurrence: US)
  Receive Date: 20130322
  Receipt Date: 20130322
  Transmission Date: 20140127
  Serious: No
  Sender: FDA-Public Use
  Company Number: US-BRISTOL-MYERS SQUIBB COMPANY-16937468

PATIENT
  Age: 60 Year
  Sex: Male

DRUGS (1)
  1. ERBITUX [Suspect]
     Indication: SQUAMOUS CELL CARCINOMA
     Dosage: NO OF DOSES-2?THERAPY DATES:23AUG12,5SEP12,19SEP12,3OCT12,17OCT12
     Route: 042
     Dates: start: 20120823

REACTIONS (1)
  - Rash [Recovering/Resolving]
